FAERS Safety Report 26207922 (Version 1)
Quarter: 2025Q4

REPORT INFORMATION
  Report Type: Spontaneous
  Country: AR (occurrence: AR)
  Receive Date: 20251229
  Receipt Date: 20251229
  Transmission Date: 20260117
  Serious: Yes (Hospitalization)
  Sender: MYLAN
  Company Number: AR-MYLANLABS-2025M1109545

PATIENT
  Sex: Male

DRUGS (3)
  1. CLOZAPINE [Suspect]
     Active Substance: CLOZAPINE
     Indication: Product used for unknown indication
     Dosage: UNK
  2. CLOZAPINE [Suspect]
     Active Substance: CLOZAPINE
     Dosage: 400 MILLIGRAM, QD (ONCE DAILY)
     Dates: start: 2016
  3. LACTULOSE [Concomitant]
     Active Substance: LACTULOSE
     Dosage: UNK QD (DAILY BASIS)

REACTIONS (2)
  - Schizophrenia [Unknown]
  - Somnolence [Unknown]
